FAERS Safety Report 5128394-2 (Version None)
Quarter: 2006Q4

REPORT INFORMATION
  Report Type: 
  Country: None (occurrence: None)
  Receive Date: 20061017
  Receipt Date: 20060614
  Transmission Date: 20070319
  Serious: Yes (Other)
  Sender: FDA-Public Use
  Company Number: PHHO2006CL09758

PATIENT
  Age: 36 Year
  Sex: Female
  Weight: 99 kg

DRUGS (2)
  1. ZELMAC / HTF 919A [Suspect]
     Indication: DYSPEPSIA
     Dosage: UNK, QD
     Route: 048
     Dates: start: 20050501, end: 20060101
  2. FOLIC ACID [Concomitant]

REACTIONS (5)
  - CAESAREAN SECTION [None]
  - DRUG EXPOSURE DURING PREGNANCY [None]
  - MUSCLE SPASMS [None]
  - NORMAL NEWBORN [None]
  - UMBILICAL CORD ABNORMALITY [None]
